FAERS Safety Report 6030146-6 (Version None)
Quarter: 2009Q1

REPORT INFORMATION
  Report Type: 
  Country: None (occurrence: None)
  Receive Date: 20090105
  Receipt Date: 20090105
  Transmission Date: 20090719
  Serious: Yes (Other)
  Sender: FDA-Public Use
  Company Number: None

PATIENT
  Age: 31 Year
  Sex: Female
  Weight: 74.8435 kg

DRUGS (2)
  1. YAZ [Suspect]
     Indication: ACNE
     Dosage: 3MG/0.02MG DAILY PO
     Route: 048
     Dates: start: 20060829, end: 20081231
  2. YAZ [Suspect]
     Indication: CONTRACEPTION
     Dosage: 3MG/0.02MG DAILY PO
     Route: 048
     Dates: start: 20060829, end: 20081231

REACTIONS (1)
  - LIBIDO DECREASED [None]
